FAERS Safety Report 6930883-2 (Version None)
Quarter: 2010Q3

REPORT INFORMATION
  Report Type: 
  Country: None (occurrence: None)
  Receive Date: 20100813
  Receipt Date: 20100731
  Transmission Date: 20110219
  Serious: Yes (Hospitalization, Other)
  Sender: FDA-Public Use
  Company Number: 2010AP001615

PATIENT
  Age: 2 Year
  Sex: Male

DRUGS (1)
  1. LAMOTRIGINE [Suspect]
     Indication: PRODUCT USED FOR UNKNOWN INDICATION
     Dosage: 43 MG/KG, PO
     Route: 048

REACTIONS (8)
  - BLOOD LACTIC ACID INCREASED [None]
  - CONVULSION [None]
  - DRUG TOXICITY [None]
  - HYPERREFLEXIA [None]
  - IRRITABILITY [None]
  - NYSTAGMUS [None]
  - OVERDOSE [None]
  - SOMNOLENCE [None]
